FAERS Safety Report 4444507-X (Version None)
Quarter: 2004Q3

REPORT INFORMATION
  Report Type: 
  Country: None (occurrence: None)
  Receive Date: 20040902
  Receipt Date: 20040817
  Transmission Date: 20050211
  Serious: No
  Sender: FDA-Public Use
  Company Number: USA040464848

PATIENT
  Age: 78 Year
  Sex: Female

DRUGS (12)
  1. FORTEO [Suspect]
     Indication: OSTEOPOROSIS
     Dosage: 20 UG DAY
     Dates: start: 20031119
  2. DARVOCET-N 100 [Concomitant]
  3. THEO-DUR [Concomitant]
  4. CALAN [Concomitant]
  5. PRILOSEC [Concomitant]
  6. LASIX [Concomitant]
  7. ADVIR [Concomitant]
  8. VITAMIN C [Concomitant]
  9. CALTRATE (CALCIUM CARBONATE) [Concomitant]
  10. COUMADIN [Concomitant]
  11. SYNTHROID [Concomitant]
  12. FEOSOL (FERROUS SULFATE) [Concomitant]

REACTIONS (6)
  - ANXIETY [None]
  - BLOOD CREATININE INCREASED [None]
  - CONDITION AGGRAVATED [None]
  - FEELING ABNORMAL [None]
  - HEADACHE [None]
  - INTERNATIONAL NORMALISED RATIO DECREASED [None]
